FAERS Safety Report 13252030 (Version 2)
Quarter: 2017Q1

REPORT INFORMATION
  Report Type: Report from Study
  Country: None (occurrence: DE)
  Receive Date: 20170220
  Receipt Date: 20170331
  Transmission Date: 20170428
  Serious: Yes (Hospitalization)
  Sender: FDA-Public Use
  Company Number: DE-ABBVIE-17P-062-1879521-00

PATIENT
  Age: 72 Year
  Sex: Male

DRUGS (5)
  1. MOTILIUM [Concomitant]
     Active Substance: DOMPERIDONE
     Indication: PRODUCT USED FOR UNKNOWN INDICATION
  2. DUODOPA [Suspect]
     Active Substance: CARBIDOPA\LEVODOPA
     Dosage: MD 12.0 ML; CRD1 6.6 ML/H; CRD2 7.0 ML/H; CRN 4.8 ML/H; ED 5.0ML
     Route: 050
     Dates: start: 2017
  3. DUODOPA [Suspect]
     Active Substance: CARBIDOPA\LEVODOPA
     Dosage: MD 11.0 ML; CRD 6.0 ML/H; CRD 7.0 ML/H; CRN 4.6 ML/H; ED 5.0 ML
     Route: 050
     Dates: start: 201702, end: 2017
  4. ASPIRIN. [Concomitant]
     Active Substance: ASPIRIN
     Indication: PRODUCT USED FOR UNKNOWN INDICATION
  5. DUODOPA [Suspect]
     Active Substance: CARBIDOPA\LEVODOPA
     Indication: PARKINSON^S DISEASE
     Route: 050
     Dates: start: 20160210, end: 201702

REACTIONS (3)
  - Chest pain [Unknown]
  - Hyperkinesia [Unknown]
  - Akinesia [Recovering/Resolving]

NARRATIVE: CASE EVENT DATE: 2017
